APPROVED DRUG PRODUCT: TADALAFIL
Active Ingredient: TADALAFIL
Strength: 20MG
Dosage Form/Route: TABLET;ORAL
Application: A215949 | Product #003 | TE Code: AB1
Applicant: NOVITIUM PHARMA LLC
Approved: Mar 3, 2023 | RLD: No | RS: No | Type: RX